FAERS Safety Report 5691535-2 (Version None)
Quarter: 2008Q2

REPORT INFORMATION
  Report Type: 
  Country: None (occurrence: None)
  Receive Date: 20080402
  Receipt Date: 20080318
  Transmission Date: 20081010
  Serious: Yes (Hospitalization)
  Sender: FDA-Public Use
  Company Number: DE-BAYER-200611800BVD

PATIENT
  Age: 70 Year
  Sex: Male

DRUGS (4)
  1. SORAFENIB [Suspect]
     Dosage: TOTAL DAILY DOSE: 800 MG
     Route: 048
     Dates: start: 20061207, end: 20061224
  2. CARBOPLATIN [Suspect]
     Route: 042
     Dates: start: 20061206
  3. PACLITAXEL [Suspect]
     Route: 042
  4. DELIX [Concomitant]
     Route: 048

REACTIONS (1)
  - DIABETES MELLITUS [None]
